FAERS Safety Report 5950321-6 (Version None)
Quarter: 2008Q4

REPORT INFORMATION
  Report Type: 
  Country: None (occurrence: None)
  Receive Date: 20081112
  Receipt Date: 20081103
  Transmission Date: 20090506
  Serious: Yes (Hospitalization, Other)
  Sender: FDA-Public Use
  Company Number: PHHY2008US25586

PATIENT
  Sex: Male

DRUGS (1)
  1. CLOZARIL [Suspect]
     Dosage: 500 MG,QD HS
     Route: 048
     Dates: end: 20081015

REACTIONS (3)
  - GRANULOCYTOPENIA [None]
  - INFECTION [None]
  - SELF INJURIOUS BEHAVIOUR [None]
